FAERS Safety Report 8962699 (Version 1)
Quarter: 2012Q4

REPORT INFORMATION
  Report Type: 
  Country: NL (occurrence: NL)
  Receive Date: 20121213
  Receipt Date: 20121213
  Transmission Date: 20130627
  Serious: Yes (Hospitalization)
  Sender: FDA-Public Use
  Company Number: NL-PFIZER INC-2012310073

PATIENT
  Age: 77 Year
  Sex: Female
  Weight: 66 kg

DRUGS (8)
  1. GENOTROPIN [Suspect]
     Dosage: 0.4 mg, 1x/day,7 injections/week.
     Route: 058
     Dates: start: 20020808
  2. LEVOTHYROXINE [Concomitant]
     Indication: TSH DECREASED
     Dosage: UNK
     Dates: start: 19840301
  3. LEVOTHYROXINE [Concomitant]
     Indication: PRIMARY HYPOTHYROIDISM
  4. TIMOLOL [Concomitant]
     Dosage: UNK
     Dates: start: 20000616
  5. LATANOPROST [Concomitant]
     Indication: GLAUCOMA
     Dosage: UNK
     Dates: start: 20020101
  6. CARBASALATE CALCIUM [Concomitant]
     Indication: AMAUROSIS FUGAX
     Dosage: UNK
     Dates: start: 20020320
  7. ATORVASTATIN [Concomitant]
     Indication: HYPERCHOLESTEROLEMIA
     Dosage: UNK
     Dates: start: 20020515
  8. DIPYRIDAMOLE [Concomitant]
     Indication: BLOOD DISORDER
     Dosage: UNK
     Dates: start: 20020320

REACTIONS (1)
  - Liver disorder [Unknown]
